FAERS Safety Report 10560555 (Version 6)
Quarter: 2018Q3

REPORT INFORMATION
  Report Type: Report from Study
  Country: US (occurrence: US)
  Receive Date: 20141103
  Receipt Date: 20180710
  Transmission Date: 20181010
  Serious: Yes (Disabling, Other)
  Sender: FDA-Public Use
  Company Number: US-SA-2014SA102015

PATIENT
  Age: 64 Year
  Sex: Female

DRUGS (5)
  1. LUMIZYME [Suspect]
     Active Substance: ALGLUCOSIDASE ALFA
     Dosage: UNK UNK,QOW
     Route: 041
     Dates: end: 20171016
  2. DIPHENHYDRAMINE HYDROCHLORIDE. [Suspect]
     Active Substance: DIPHENHYDRAMINE HYDROCHLORIDE
     Dosage: UNK UNK,UNK
     Route: 065
  3. LUMIZYME [Suspect]
     Active Substance: ALGLUCOSIDASE ALFA
     Indication: GLYCOGEN STORAGE DISEASE TYPE II
     Dosage: UNK UNK,QOW
     Route: 041
     Dates: start: 20110706, end: 20170314
  4. LUMIZYME [Suspect]
     Active Substance: ALGLUCOSIDASE ALFA
     Dosage: DOSE: 1900.00 FREQUENCY: Q2
     Route: 041
     Dates: start: 20180226
  5. LUMIZYME [Suspect]
     Active Substance: ALGLUCOSIDASE ALFA
     Dosage: UNK UNK,QOW
     Route: 041
     Dates: end: 20180111

REACTIONS (25)
  - Nervousness [Recovered/Resolved]
  - Hypertension [Not Recovered/Not Resolved]
  - Tinnitus [Not Recovered/Not Resolved]
  - Therapeutic response decreased [Unknown]
  - Hepatic enzyme increased [Not Recovered/Not Resolved]
  - Fibromyalgia [Not Recovered/Not Resolved]
  - Disturbance in attention [Not Recovered/Not Resolved]
  - Ankle fracture [Recovering/Resolving]
  - Asthenia [Recovering/Resolving]
  - Unevaluable event [Recovered/Resolved]
  - Pneumonia [Recovering/Resolving]
  - Palpitations [Not Recovered/Not Resolved]
  - Chest discomfort [Recovered/Resolved]
  - Feeling abnormal [Recovered/Resolved]
  - Throat tightness [Recovered/Resolved]
  - Insomnia [Not Recovered/Not Resolved]
  - Fall [Recovering/Resolving]
  - Peripheral coldness [Recovered/Resolved]
  - Fatigue [Not Recovered/Not Resolved]
  - Asthenia [Not Recovered/Not Resolved]
  - Frustration tolerance decreased [Recovering/Resolving]
  - Pain in extremity [Recovered/Resolved]
  - Pain [Not Recovered/Not Resolved]
  - Flushing [Recovered/Resolved]
  - Muscle spasms [Recovering/Resolving]

NARRATIVE: CASE EVENT DATE: 201407
